FAERS Safety Report 9218962 (Version 2)
Quarter: 2013Q3

REPORT INFORMATION
  Report Type: Spontaneous
  Country: GB (occurrence: GB)
  Receive Date: 20130409
  Receipt Date: 20130805
  Transmission Date: 20140515
  Serious: Yes (Other)
  Sender: FDA-Public Use
  Company Number: GB-ACCORD-017102

PATIENT
  Sex: Male

DRUGS (2)
  1. QUETIAPINE FUMARATE [Suspect]
     Indication: INSOMNIA
     Dosage: STARTED WITH 25 MG, INCREMENTAL DOSES TO REACH MAX OF 150 MG?AT BEDTIME
     Dates: start: 201209, end: 201302
  2. SODIUM BICARBONATE [Concomitant]
     Indication: NEPHROLITHIASIS
     Route: 048
     Dates: start: 20111021

REACTIONS (2)
  - Sexual activity increased [Unknown]
  - Off label use [Unknown]
